FAERS Safety Report 15286045 (Version 2)
Quarter: 2018Q3

REPORT INFORMATION
  Report Type: Report from Study
  Country: US (occurrence: US)
  Receive Date: 20180816
  Receipt Date: 20180821
  Transmission Date: 20181010
  Serious: Yes (Life-Threatening)
  Sender: FDA-Public Use
  Company Number: US-PFIZER INC-2018326121

PATIENT
  Age: 67 Year
  Sex: Female
  Weight: 73.2 kg

DRUGS (4)
  1. CYTARABINE. [Suspect]
     Active Substance: CYTARABINE
     Indication: ACUTE MYELOID LEUKAEMIA
     Dosage: 180 MG, DAILY
     Route: 041
     Dates: start: 20180730, end: 20180805
  2. PF?04449913 [Suspect]
     Active Substance: GLASDEGIB
     Indication: ACUTE MYELOID LEUKAEMIA
     Dosage: UNK UNK, ONCE DAILY CONTINUOUS
     Route: 048
     Dates: start: 20180730, end: 20180810
  3. VANCOMYCIN HCL [Suspect]
     Active Substance: VANCOMYCIN HYDROCHLORIDE
  4. DAUNORUBICIN [Suspect]
     Active Substance: DAUNORUBICIN
     Indication: ACUTE MYELOID LEUKAEMIA
     Dosage: POWDER FOR SOLUTION FOR INFUSION, 105 MG DAILY BY CONTINUOUS INFUSION
     Route: 041
     Dates: start: 20180730, end: 20180801

REACTIONS (2)
  - Febrile neutropenia [Not Recovered/Not Resolved]
  - Thrombocytopenia [Not Recovered/Not Resolved]

NARRATIVE: CASE EVENT DATE: 20180809
